FAERS Safety Report 5717167-5 (Version None)
Quarter: 2008Q2

REPORT INFORMATION
  Report Type: 
  Country: None (occurrence: None)
  Receive Date: 20080424
  Receipt Date: 20080416
  Transmission Date: 20081010
  Serious: Yes (Hospitalization)
  Sender: FDA-Public Use
  Company Number: FR-PFIZER INC-2008033730

PATIENT
  Sex: Male
  Weight: 54 kg

DRUGS (12)
  1. TRIFLUCAN [Suspect]
     Dosage: DAILY DOSE:50MG
     Route: 048
     Dates: start: 20080123, end: 20080130
  2. MALOCIDE [Suspect]
     Route: 048
     Dates: start: 20080108, end: 20080131
  3. TRUVADA [Suspect]
     Dosage: DAILY DOSE:50MG
     Route: 048
     Dates: start: 20080118, end: 20080131
  4. ADIAZINE [Suspect]
     Route: 048
     Dates: start: 20080108, end: 20080131
  5. KALETRA [Suspect]
     Dosage: TEXT:4 DF
     Route: 048
     Dates: start: 20080118, end: 20080131
  6. ALL OTHER THERAPEUTIC PRODUCTS [Concomitant]
  7. NEFOPAM HYDROCHLORIDE [Concomitant]
     Dates: start: 20080120, end: 20080131
  8. DOMPERIDONE [Concomitant]
     Dates: start: 20080123, end: 20080131
  9. PANTOPRAZOLE SODIUM [Concomitant]
     Dates: start: 20080123, end: 20080131
  10. CALCIUM FOLINATE [Concomitant]
     Dates: start: 20080123, end: 20080131
  11. NICOTINE [Concomitant]
     Dates: start: 20080123, end: 20080131
  12. ZOPICLONE [Concomitant]
     Dates: start: 20080123, end: 20080131

REACTIONS (3)
  - ANURIA [None]
  - NEPHROLITHIASIS [None]
  - RENAL FAILURE ACUTE [None]
